FAERS Safety Report 23448218 (Version 1)
Quarter: 2024Q1

REPORT INFORMATION
  Report Type: Spontaneous
  Country: US (occurrence: US)
  Receive Date: 20240126
  Receipt Date: 20240126
  Transmission Date: 20240410
  Serious: No
  Sender: FDA-Public Use
  Company Number: US-ABBVIE-5601470

PATIENT
  Age: 62 Year
  Sex: Female
  Weight: 61 kg

DRUGS (1)
  1. RESTASIS [Suspect]
     Active Substance: CYCLOSPORINE
     Indication: Dry eye
     Dosage: FROM STRENGTH: 0.5MG/ML, ONE DROP IN EACH EYE TWICE A DAY IN MORNING AND NIGHT
     Route: 047
     Dates: start: 202401, end: 20240109

REACTIONS (5)
  - Nasal discomfort [Recovered/Resolved]
  - Allergic reaction to excipient [Unknown]
  - Throat irritation [Recovered/Resolved]
  - Eye irritation [Recovered/Resolved]
  - Eye irritation [Recovered/Resolved]

NARRATIVE: CASE EVENT DATE: 20240101
